FAERS Safety Report 10649898 (Version 1)
Quarter: 2014Q4

REPORT INFORMATION
  Report Type: Spontaneous
  Country: IT (occurrence: IT)
  Receive Date: 20141212
  Receipt Date: 20141212
  Transmission Date: 20150529
  Serious: Yes (Other)
  Sender: FDA-Public Use
  Company Number: IT-ASTRAZENECA-2014SE93954

PATIENT
  Age: 28286 Day
  Sex: Male

DRUGS (1)
  1. SEROQUEL [Suspect]
     Active Substance: QUETIAPINE FUMARATE
     Indication: PSYCHOMOTOR HYPERACTIVITY
     Route: 048
     Dates: start: 20141120, end: 20141129

REACTIONS (3)
  - Thought blocking [Recovered/Resolved]
  - Sensorimotor disorder [Recovered/Resolved]
  - Narcolepsy [Recovered/Resolved]

NARRATIVE: CASE EVENT DATE: 20141125
